FAERS Safety Report 17102089 (Version 4)
Quarter: 2019Q4

REPORT INFORMATION
  Report Type: Report from Study
  Country: HU (occurrence: HU)
  Receive Date: 20191202
  Receipt Date: 20191219
  Transmission Date: 20200122
  Serious: Yes (Other)
  Sender: FDA-Public Use
  Company Number: NVSC2019HU047574

PATIENT
  Age: 56 Year
  Sex: Male
  Weight: 79.9 kg

DRUGS (3)
  1. TASIGNA [Suspect]
     Active Substance: NILOTINIB
     Dosage: 150 MG, QD
     Route: 048
     Dates: start: 20191002
  2. TODEP [Concomitant]
     Indication: EYE INFLAMMATION
     Dosage: 3 DF, QD
     Route: 065
     Dates: start: 20190916, end: 20190917
  3. TASIGNA [Suspect]
     Active Substance: NILOTINIB
     Indication: CHRONIC MYELOID LEUKAEMIA
     Dosage: 300 MG, BID
     Route: 048
     Dates: start: 20190906, end: 20191003

REACTIONS (4)
  - Thrombocytopenia [Recovering/Resolving]
  - Gamma-glutamyltransferase increased [Unknown]
  - White blood cell count increased [Recovering/Resolving]
  - Blood glucose increased [Unknown]

NARRATIVE: CASE EVENT DATE: 20191002
